FAERS Safety Report 5269306-0 (Version None)
Quarter: 2007Q1

REPORT INFORMATION
  Report Type: 
  Country: None (occurrence: None)
  Receive Date: 20070319
  Receipt Date: 20070307
  Transmission Date: 20070707
  Serious: Yes (Hospitalization)
  Sender: FDA-Public Use
  Company Number: BR-PFIZER INC-2007015758

PATIENT
  Sex: Male

DRUGS (3)
  1. SUTENT [Suspect]
     Indication: RENAL CANCER METASTATIC
     Route: 048
     Dates: start: 20061226, end: 20070101
  2. INSULIN [Concomitant]
     Route: 065
  3. DRUG, UNSPECIFIED [Concomitant]
     Indication: HYPERTENSION
     Route: 065

REACTIONS (14)
  - ANAEMIA [None]
  - CARDIAC FAILURE [None]
  - DECREASED APPETITE [None]
  - DIABETES MELLITUS [None]
  - DIABETES MELLITUS INADEQUATE CONTROL [None]
  - DYSPNOEA [None]
  - HAEMODIALYSIS [None]
  - INSOMNIA [None]
  - INTESTINAL HAEMORRHAGE [None]
  - NAUSEA [None]
  - PALLOR [None]
  - PLATELET COUNT DECREASED [None]
  - PROSTRATION [None]
  - RENAL FAILURE [None]
